FAERS Safety Report 9065149 (Version 2)
Quarter: 2013Q2

REPORT INFORMATION
  Report Type: Spontaneous
  Country: US (occurrence: US)
  Receive Date: 20130214
  Receipt Date: 20130627
  Transmission Date: 20140414
  Serious: No
  Sender: FDA-Public Use
  Company Number: US-PFIZER INC-2013053569

PATIENT
  Age: 61 Year
  Sex: Female
  Weight: 140 kg

DRUGS (2)
  1. PREMPRO [Suspect]
     Indication: MENOPAUSAL SYMPTOMS
     Dosage: 0.45MG/1.5MG, 1X/DAY
  2. LEVOTHYROXINE SODIUM [Concomitant]
     Indication: THYROID DISORDER
     Dosage: 75 UG, 1X/DAY IN THE MORNING

REACTIONS (5)
  - Back injury [Unknown]
  - Depression [Unknown]
  - Activities of daily living impaired [Not Recovered/Not Resolved]
  - Insomnia [Not Recovered/Not Resolved]
  - Hot flush [Not Recovered/Not Resolved]
